FAERS Safety Report 5466924-1 (Version None)
Quarter: 2007Q3

REPORT INFORMATION
  Report Type: 
  Country: None (occurrence: None)
  Receive Date: 20070921
  Receipt Date: 20070921
  Transmission Date: 20080115
  Serious: No
  Sender: FDA-Public Use
  Company Number: None

PATIENT
  Age: 38 Year
  Sex: Male
  Weight: 81.6475 kg

DRUGS (1)
  1. CHANTIX [Suspect]
     Indication: SMOKING CESSATION THERAPY
     Dosage: OTHER
     Route: 050
     Dates: start: 20070901, end: 20070919

REACTIONS (3)
  - AGGRESSION [None]
  - INSOMNIA [None]
  - PERSONALITY CHANGE [None]
